FAERS Safety Report 5053476-3 (Version None)
Quarter: 2006Q3

REPORT INFORMATION
  Report Type: 
  Country: None (occurrence: None)
  Receive Date: 20060712
  Receipt Date: 20060629
  Transmission Date: 20061208
  Serious: Yes (Other)
  Sender: FDA-Public Use
  Company Number: 2006081825

PATIENT
  Age: 32 Year
  Sex: Female

DRUGS (4)
  1. ZMAX [Suspect]
     Indication: BRONCHITIS CHRONIC
     Dosage: 2 GRAM (2 GRAM, 1 IN 1 D), ORAL
     Route: 048
     Dates: start: 20060627, end: 20060627
  2. ZMAX [Suspect]
     Indication: CONDITION AGGRAVATED
     Dosage: 2 GRAM (2 GRAM, 1 IN 1 D), ORAL
     Route: 048
     Dates: start: 20060627, end: 20060627
  3. ACETAMINOPHEN [Concomitant]
  4. NEOZEP (ASCORBIC ACID, CHLORPHENAMINE MALEATE, PARACETAMOL, PHENYLPROP [Concomitant]

REACTIONS (4)
  - ABDOMINAL PAIN UPPER [None]
  - DIARRHOEA [None]
  - LOSS OF CONSCIOUSNESS [None]
  - VOMITING [None]
